FAERS Safety Report 16814167 (Version 1)
Quarter: 2019Q3

REPORT INFORMATION
  Report Type: Spontaneous
  Country: JP (occurrence: JP)
  Receive Date: 20190917
  Receipt Date: 20190917
  Transmission Date: 20191005
  Serious: Yes (Hospitalization)
  Sender: FDA-Public Use
  Company Number: JP-SA-2019SA209927

PATIENT
  Age: 90 Year
  Sex: Female
  Weight: 41 kg

DRUGS (9)
  1. HYALEIN [Concomitant]
     Active Substance: HYALURONATE SODIUM
     Indication: PRODUCT USED FOR UNKNOWN INDICATION
     Route: 065
  2. CLOPIDOGREL TABLETS 25MG [SANIK] [Suspect]
     Active Substance: CLOPIDOGREL BISULFATE
     Indication: THROMBOTIC CEREBRAL INFARCTION
     Dosage: 50 MG, QD
     Route: 048
     Dates: start: 20190711, end: 20190716
  3. TAKECAB [Concomitant]
     Active Substance: VONOPRAZAN FUMURATE
     Indication: PRODUCT USED FOR UNKNOWN INDICATION
     Route: 065
  4. UBRETID [Concomitant]
     Active Substance: DISTIGMINE BROMIDE
     Indication: PRODUCT USED FOR UNKNOWN INDICATION
     Route: 065
  5. FERROUS CITRATE NA [Concomitant]
     Active Substance: SODIUM FERROUS CITRATE
     Indication: PRODUCT USED FOR UNKNOWN INDICATION
     Route: 065
  6. MIKELAN LA [Concomitant]
     Active Substance: CARTEOLOL HYDROCHLORIDE
     Indication: PRODUCT USED FOR UNKNOWN INDICATION
     Route: 065
  7. EDARAVONE [Suspect]
     Active Substance: EDARAVONE
     Indication: THROMBOTIC CEREBRAL INFARCTION
     Dosage: 30 MG, BID
     Route: 041
     Dates: start: 20190711, end: 20190716
  8. BAYASPIRIN [Concomitant]
     Active Substance: ASPIRIN
     Indication: PRODUCT USED FOR UNKNOWN INDICATION
     Dosage: UNK
     Route: 065
     Dates: start: 20190711
  9. BIOFERMIN [BIFIDOBACTERIUM NOS] [Concomitant]
     Indication: PRODUCT USED FOR UNKNOWN INDICATION
     Route: 065

REACTIONS (4)
  - Platelet count decreased [Recovering/Resolving]
  - Red blood cell count decreased [Recovering/Resolving]
  - Reticulocyte count increased [Unknown]
  - White blood cell count decreased [Recovering/Resolving]

NARRATIVE: CASE EVENT DATE: 20190716
